FAERS Safety Report 5003500-9 (Version None)
Quarter: 2006Q2

REPORT INFORMATION
  Report Type: 
  Country: None (occurrence: None)
  Receive Date: 20060512
  Receipt Date: 20060502
  Transmission Date: 20061013
  Serious: Yes (Other)
  Sender: FDA-Public Use
  Company Number: 163-20785-06050138

PATIENT
  Age: 49 Year
  Sex: Male

DRUGS (3)
  1. THALOMID [Suspect]
     Indication: MALIGNANT MELANOMA
     Dosage: 100 MG, QD, ORAL
     Route: 048
     Dates: start: 20060217, end: 20060221
  2. LOVENOX [Suspect]
     Indication: THROMBOPHLEBITIS
     Dates: start: 20060201
  3. TEMODAR [Concomitant]

REACTIONS (2)
  - HAEMORRHAGE [None]
  - THROMBOPHLEBITIS [None]
